FAERS Safety Report 9904866 (Version 2)
Quarter: 2014Q3

REPORT INFORMATION
  Report Type: Spontaneous
  Country: US (occurrence: US)
  Receive Date: 20140218
  Receipt Date: 20140731
  Transmission Date: 20150326
  Serious: Yes (Other)
  Sender: FDA-Public Use
  Company Number: US-009507513-1402USA007302

PATIENT
  Sex: Female
  Weight: 86.53 kg

DRUGS (1)
  1. NUVARING [Suspect]
     Active Substance: ETHINYL ESTRADIOL\ETONOGESTREL
     Dosage: UNK
     Route: 067
     Dates: start: 2011, end: 20120924

REACTIONS (8)
  - Deep vein thrombosis [Unknown]
  - Laparoscopy [Unknown]
  - Renal failure chronic [Not Recovered/Not Resolved]
  - Tonsillectomy [Unknown]
  - Hernia repair [Unknown]
  - Hidradenitis [Unknown]
  - Dizziness [Unknown]
  - Headache [Unknown]

NARRATIVE: CASE EVENT DATE: 201108
